FAERS Safety Report 13463253 (Version 2)
Quarter: 2017Q3

REPORT INFORMATION
  Report Type: Spontaneous
  Country: CA (occurrence: CA)
  Receive Date: 20170420
  Receipt Date: 20170829
  Transmission Date: 20171127
  Serious: Yes (Other)
  Sender: FDA-Public Use
  Company Number: CA-ESPERO PHARMACEUTICALS-ESP201704-000071

PATIENT
  Age: 83 Year
  Sex: Female

DRUGS (15)
  1. NITROGLYCERIN. [Suspect]
     Active Substance: NITROGLYCERIN
  2. MACROGOL 3350 [Suspect]
     Active Substance: POLYETHYLENE GLYCOL 3350
  3. FUROSEMIDE. [Concomitant]
     Active Substance: FUROSEMIDE
     Route: 030
  4. CLOPIDOGREL [Concomitant]
     Active Substance: CLOPIDOGREL BISULFATE
  5. OXAZEPAM. [Concomitant]
     Active Substance: OXAZEPAM
  6. AMLODIPINE [Suspect]
     Active Substance: AMLODIPINE BESYLATE
     Dosage: HALF A 5MG TABLET TWICE DAILY
  7. ESCITALOPRAM [Concomitant]
     Active Substance: ESCITALOPRAM OXALATE
  8. ZOPICLONE [Concomitant]
     Active Substance: ZOPICLONE
  9. RAMIPRIL. [Concomitant]
     Active Substance: RAMIPRIL
  10. VITAMIN D [Concomitant]
     Active Substance: CHOLECALCIFEROL
  11. NITROGLYCERIN. [Suspect]
     Active Substance: NITROGLYCERIN
     Dosage: TWO 0.4MG PATCHES ON AT 9AM OFF AT 10PM
  12. ATORVASTATIN [Concomitant]
     Active Substance: ATORVASTATIN
  13. METOPROLOL. [Concomitant]
     Active Substance: METOPROLOL
     Dosage: HALF A 50MG TABLET TWICE DAILY
     Route: 048
  14. PANTOPRAZOLE [Concomitant]
     Active Substance: PANTOPRAZOLE
  15. PARACETAMOL [Concomitant]
     Active Substance: ACETAMINOPHEN

REACTIONS (5)
  - Dizziness [Unknown]
  - Hypotension [Unknown]
  - Oedema peripheral [Unknown]
  - Fall [Unknown]
  - Bradycardia [Unknown]
